FAERS Safety Report 24789191 (Version 1)
Quarter: 2024Q4

REPORT INFORMATION
  Report Type: Spontaneous
  Country: US (occurrence: None)
  Receive Date: 20241228
  Receipt Date: 20241228
  Transmission Date: 20250114
  Serious: Yes (Other)
  Sender: Public
  Company Number: None

PATIENT
  Age: 59 Year
  Sex: Female
  Weight: 76.5 kg

DRUGS (6)
  1. SULFAMETHOXAZOLE\TRIMETHOPRIM [Suspect]
     Active Substance: SULFAMETHOXAZOLE\TRIMETHOPRIM
     Indication: Localised infection
     Dosage: OTHER QUANTITY : 1 TABLET(S);?FREQUENCY : EVERY 12 HOURS;?
     Route: 048
     Dates: start: 20241227, end: 20241227
  2. ASPIRIN [Concomitant]
     Active Substance: ASPIRIN
  3. ZETIA [Concomitant]
     Active Substance: EZETIMIBE
  4. CRESTOR [Concomitant]
     Active Substance: ROSUVASTATIN CALCIUM
  5. VITAMINS [Concomitant]
     Active Substance: VITAMINS
  6. LECITHIN [Concomitant]
     Active Substance: LECITHIN

REACTIONS (3)
  - Feeling abnormal [None]
  - Pain in extremity [None]
  - Heart rate increased [None]

NARRATIVE: CASE EVENT DATE: 20241227
